FAERS Safety Report 10440888 (Version 1)
Quarter: 2014Q3

REPORT INFORMATION
  Report Type: Spontaneous
  Country: JP (occurrence: JP)
  Receive Date: 20140909
  Receipt Date: 20140909
  Transmission Date: 20150326
  Serious: Yes (Hospitalization)
  Sender: FDA-Public Use
  Company Number: JP-ROXANE LABORATORIES, INC.-2014-RO-01319RO

PATIENT
  Age: 1 Day
  Sex: Male
  Weight: 1.81 kg

DRUGS (4)
  1. CYCLOSPORINE. [Suspect]
     Active Substance: CYCLOSPORINE
     Indication: EXPOSURE DURING PREGNANCY
     Route: 064
  2. METHYLPREDNISOLONE [Suspect]
     Active Substance: METHYLPREDNISOLONE
     Indication: EXPOSURE DURING PREGNANCY
     Route: 064
  3. PROBENECID. [Suspect]
     Active Substance: PROBENECID
     Indication: EXPOSURE DURING PREGNANCY
     Route: 064
  4. AZATHIOPRINE. [Suspect]
     Active Substance: AZATHIOPRINE
     Indication: EXPOSURE DURING PREGNANCY
     Route: 064

REACTIONS (5)
  - Foetal growth restriction [Unknown]
  - Premature baby [Unknown]
  - Tachypnoea [Unknown]
  - Pancytopenia [Unknown]
  - Low birth weight baby [Recovered/Resolved]
